FAERS Safety Report 4697767-4 (Version None)
Quarter: 2005Q2

REPORT INFORMATION
  Report Type: 
  Country: None (occurrence: None)
  Receive Date: 20050621
  Receipt Date: 20050614
  Transmission Date: 20051028
  Serious: Yes (Other)
  Sender: FDA-Public Use
  Company Number: 200511188BWH

PATIENT
  Age: 59 Year
  Sex: Male

DRUGS (1)
  1. AVELOX [Suspect]
     Indication: FEBRILE NEUTROPENIA
     Dosage: INTRAVENOUS
     Route: 042

REACTIONS (1)
  - NEPHRITIS INTERSTITIAL [None]
